FAERS Safety Report 22192159 (Version 1)
Quarter: 2023Q2

REPORT INFORMATION
  Report Type: Report from Study
  Country: US (occurrence: US)
  Receive Date: 20230410
  Receipt Date: 20230410
  Transmission Date: 20230722
  Serious: Yes (Other)
  Sender: FDA-Public Use
  Company Number: US-UCBSA-2023015774

PATIENT
  Sex: Female

DRUGS (1)
  1. VIMPAT [Suspect]
     Active Substance: LACOSAMIDE
     Indication: Seizure
     Dosage: 400 MILLIGRAM, 2X/DAY (BID)

REACTIONS (4)
  - Brain operation [Unknown]
  - Pancreatic disorder [Unknown]
  - Therapy interrupted [Unknown]
  - Overdose [Unknown]
